FAERS Safety Report 8203063-0 (Version None)
Quarter: 2012Q1

REPORT INFORMATION
  Report Type: 
  Country: None (occurrence: None)
  Receive Date: 20120312
  Receipt Date: 20120227
  Transmission Date: 20120608
  Serious: Yes (Hospitalization, Other)
  Sender: FDA-Public Use
  Company Number: DE-CELGENEUS-062-21880-10061244

PATIENT
  Age: 69 Year
  Sex: Female
  Weight: 62 kg

DRUGS (10)
  1. REVLIMID [Suspect]
     Indication: MULTIPLE MYELOMA
     Dosage: 25 MILLIGRAM
     Route: 048
     Dates: start: 20091214, end: 20100601
  2. REVLIMID [Suspect]
     Route: 048
     Dates: start: 20101001
  3. LORAZEPAM [Concomitant]
     Route: 065
  4. ASPIRIN [Concomitant]
     Route: 065
  5. CLOPIDOGREL [Concomitant]
     Route: 065
  6. OMEPRAZOLE [Concomitant]
     Dosage: 20 MILLIGRAM
     Route: 065
  7. BISOPROLOL FUMARATE [Concomitant]
     Dosage: 5 MILLIGRAM
     Route: 065
  8. DEXAMETHASONE [Suspect]
     Indication: MULTIPLE MYELOMA
     Dosage: 40 MILLIGRAM
     Route: 065
     Dates: start: 20091214, end: 20100601
  9. ENOXAPARIN [Concomitant]
     Dosage: 60 MILLIGRAM
     Route: 058
  10. FENTANYL [Concomitant]
     Dosage: 50UG/H
     Route: 065

REACTIONS (6)
  - PANCREATITIS ACUTE [None]
  - ATRIAL FIBRILLATION [None]
  - PANCREATITIS [None]
  - ACUTE MYOCARDIAL INFARCTION [None]
  - PNEUMONIA [None]
  - HAEMOPTYSIS [None]
